FAERS Safety Report 16868704 (Version 1)
Quarter: 2019Q4

REPORT INFORMATION
  Report Type: Spontaneous
  Country: US (occurrence: US)
  Receive Date: 20190930
  Receipt Date: 20190930
  Transmission Date: 20200122
  Serious: No
  Sender: FDA-Public Use
  Company Number: None

PATIENT
  Age: 53 Year
  Sex: Male
  Weight: 78.75 kg

DRUGS (8)
  1. CLONAZEPAM. [Suspect]
     Active Substance: CLONAZEPAM
     Indication: ANXIETY
     Dosage: ?          QUANTITY:90 TABLET(S);?
     Route: 048
     Dates: start: 20190601, end: 20190925
  2. VITAMIN C [Concomitant]
     Active Substance: ASCORBIC ACID
  3. CLONAZEPAM. [Suspect]
     Active Substance: CLONAZEPAM
     Indication: PANIC ATTACK
     Dosage: ?          QUANTITY:90 TABLET(S);?
     Route: 048
     Dates: start: 20190601, end: 20190925
  4. METAPROLOL ER [Concomitant]
  5. VITAMIN D [Concomitant]
     Active Substance: VITAMIN D NOS
  6. MULTI VITAMIN [Concomitant]
     Active Substance: VITAMINS
  7. VITAMIN B [Concomitant]
     Active Substance: VITAMIN B
  8. CLONAZEPAM. [Concomitant]
     Active Substance: CLONAZEPAM

REACTIONS (4)
  - Anxiety [None]
  - Drug withdrawal syndrome [None]
  - Product substitution issue [None]
  - Panic reaction [None]

NARRATIVE: CASE EVENT DATE: 20190628
